FAERS Safety Report 9558348 (Version 2)
Quarter: 2013Q4

REPORT INFORMATION
  Report Type: Report from Study
  Country: GB (occurrence: GB)
  Receive Date: 20130926
  Receipt Date: 20131029
  Transmission Date: 20140711
  Serious: Yes (Death)
  Sender: FDA-Public Use
  Company Number: GB-ROCHE-1280417

PATIENT
  Sex: Female

DRUGS (2)
  1. RITUXIMAB [Suspect]
     Indication: RHEUMATOID ARTHRITIS
     Route: 065
     Dates: start: 20080715, end: 200909
  2. METHOTREXATE [Concomitant]

REACTIONS (3)
  - Bacteraemia [Fatal]
  - Skin ulcer [Fatal]
  - Pyoderma gangrenosum [Fatal]
